FAERS Safety Report 8148570-4 (Version None)
Quarter: 2012Q1

REPORT INFORMATION
  Report Type: 
  Country: None (occurrence: None)
  Receive Date: 20120218
  Receipt Date: 20110617
  Transmission Date: 20120608
  Serious: No
  Sender: FDA-Public Use
  Company Number: US-ALLERGAN-1108276US

PATIENT
  Age: 80 Year
  Sex: Male

DRUGS (7)
  1. COREG [Concomitant]
     Indication: PRODUCT USED FOR UNKNOWN INDICATION
  2. COUMADIN [Concomitant]
     Indication: PRODUCT USED FOR UNKNOWN INDICATION
  3. COLACE [Concomitant]
     Indication: PRODUCT USED FOR UNKNOWN INDICATION
  4. BOTULINUM TOXIN TYPE A [Suspect]
     Indication: TORTICOLLIS
     Dosage: 200 UNITS, SINGLE
     Route: 030
     Dates: start: 20110208, end: 20110208
  5. IRON [Concomitant]
     Indication: PRODUCT USED FOR UNKNOWN INDICATION
     Dosage: UNK
  6. SINEMET [Concomitant]
     Indication: PRODUCT USED FOR UNKNOWN INDICATION
  7. CLARITIN [Concomitant]
     Indication: PRODUCT USED FOR UNKNOWN INDICATION

REACTIONS (10)
  - HEAD DISCOMFORT [None]
  - MUSCULOSKELETAL DISCOMFORT [None]
  - FATIGUE [None]
  - DIPLOPIA [None]
  - HYPOAESTHESIA [None]
  - MUSCULOSKELETAL STIFFNESS [None]
  - NECK PAIN [None]
  - DIZZINESS [None]
  - HEADACHE [None]
  - MYALGIA [None]
